FAERS Safety Report 25648841 (Version 1)
Quarter: 2025Q3

REPORT INFORMATION
  Report Type: Spontaneous
  Country: EU (occurrence: EU)
  Receive Date: 20250806
  Receipt Date: 20250806
  Transmission Date: 20251020
  Serious: Yes (Death, Hospitalization)
  Sender: MYLAN
  Company Number: None

PATIENT
  Age: 47 Year
  Sex: Female
  Weight: 64 kg

DRUGS (152)
  1. DIAZEPAM [Suspect]
     Active Substance: DIAZEPAM
     Indication: Oesophagogastroscopy
     Dosage: 10 MILLIGRAM, QD
     Dates: start: 19980415, end: 19980415
  2. DIAZEPAM [Suspect]
     Active Substance: DIAZEPAM
     Dosage: 10 MILLIGRAM, QD
     Route: 048
     Dates: start: 19980415, end: 19980415
  3. DIAZEPAM [Suspect]
     Active Substance: DIAZEPAM
     Dosage: 10 MILLIGRAM, QD
     Route: 048
     Dates: start: 19980415, end: 19980415
  4. DIAZEPAM [Suspect]
     Active Substance: DIAZEPAM
     Dosage: 10 MILLIGRAM, QD
     Dates: start: 19980415, end: 19980415
  5. SPIRONOLACTONE [Suspect]
     Active Substance: SPIRONOLACTONE
     Indication: Oedema
     Dates: start: 19980323, end: 19980405
  6. SPIRONOLACTONE [Suspect]
     Active Substance: SPIRONOLACTONE
     Route: 048
     Dates: start: 19980323, end: 19980405
  7. SPIRONOLACTONE [Suspect]
     Active Substance: SPIRONOLACTONE
     Route: 048
     Dates: start: 19980323, end: 19980405
  8. SPIRONOLACTONE [Suspect]
     Active Substance: SPIRONOLACTONE
     Dates: start: 19980323, end: 19980405
  9. NOVALGIN (METAMIZOLE SODIUM) [Suspect]
     Active Substance: METAMIZOLE SODIUM
     Indication: Pain
     Dates: start: 19980403, end: 19980403
  10. NOVALGIN (METAMIZOLE SODIUM) [Suspect]
     Active Substance: METAMIZOLE SODIUM
     Route: 048
     Dates: start: 19980403, end: 19980403
  11. NOVALGIN (METAMIZOLE SODIUM) [Suspect]
     Active Substance: METAMIZOLE SODIUM
     Route: 048
     Dates: start: 19980403, end: 19980403
  12. NOVALGIN (METAMIZOLE SODIUM) [Suspect]
     Active Substance: METAMIZOLE SODIUM
     Dates: start: 19980403, end: 19980403
  13. TRAMADOL [Suspect]
     Active Substance: TRAMADOL
     Indication: Pain
     Dosage: 20 GTT DROPS, QD
     Dates: start: 19980409, end: 19980417
  14. TRAMADOL [Suspect]
     Active Substance: TRAMADOL
     Dosage: 20 GTT DROPS, QD
     Route: 048
     Dates: start: 19980409, end: 19980417
  15. TRAMADOL [Suspect]
     Active Substance: TRAMADOL
     Dosage: 20 GTT DROPS, QD
     Route: 048
     Dates: start: 19980409, end: 19980417
  16. TRAMADOL [Suspect]
     Active Substance: TRAMADOL
     Dosage: 20 GTT DROPS, QD
     Dates: start: 19980409, end: 19980417
  17. KONAKION [Suspect]
     Active Substance: PHYTONADIONE
     Indication: Vitamin K deficiency
     Dosage: 15 GTT DROPS, QD
     Dates: start: 19980409, end: 19980426
  18. KONAKION [Suspect]
     Active Substance: PHYTONADIONE
     Dosage: 15 GTT DROPS, QD
     Route: 048
     Dates: start: 19980409, end: 19980426
  19. KONAKION [Suspect]
     Active Substance: PHYTONADIONE
     Dosage: 15 GTT DROPS, QD
     Route: 048
     Dates: start: 19980409, end: 19980426
  20. KONAKION [Suspect]
     Active Substance: PHYTONADIONE
     Dosage: 15 GTT DROPS, QD
     Dates: start: 19980409, end: 19980426
  21. CLOTRIMAZOLE [Suspect]
     Active Substance: CLOTRIMAZOLE
     Indication: Vulvovaginal candidiasis
     Dates: start: 19980415, end: 19980426
  22. CLOTRIMAZOLE [Suspect]
     Active Substance: CLOTRIMAZOLE
     Route: 061
     Dates: start: 19980415, end: 19980426
  23. CLOTRIMAZOLE [Suspect]
     Active Substance: CLOTRIMAZOLE
     Route: 061
     Dates: start: 19980415, end: 19980426
  24. CLOTRIMAZOLE [Suspect]
     Active Substance: CLOTRIMAZOLE
     Dates: start: 19980415, end: 19980426
  25. IMODIUM [Suspect]
     Active Substance: LOPERAMIDE HYDROCHLORIDE
     Indication: Gastroenteritis viral
     Dosage: 4 DOSAGE FORM, QD
     Dates: start: 19980405, end: 19980406
  26. IMODIUM [Suspect]
     Active Substance: LOPERAMIDE HYDROCHLORIDE
     Dosage: 4 DOSAGE FORM, QD
     Route: 048
     Dates: start: 19980405, end: 19980406
  27. IMODIUM [Suspect]
     Active Substance: LOPERAMIDE HYDROCHLORIDE
     Dosage: 4 DOSAGE FORM, QD
     Route: 048
     Dates: start: 19980405, end: 19980406
  28. IMODIUM [Suspect]
     Active Substance: LOPERAMIDE HYDROCHLORIDE
     Dosage: 4 DOSAGE FORM, QD
     Dates: start: 19980405, end: 19980406
  29. CIPROFLOXACIN LACTATE [Suspect]
     Active Substance: CIPROFLOXACIN LACTATE
     Indication: Pyrexia
     Dosage: 2 DOSAGE FORM, QD
     Route: 048
     Dates: start: 19980404, end: 19980410
  30. CIPROFLOXACIN LACTATE [Suspect]
     Active Substance: CIPROFLOXACIN LACTATE
     Dosage: 2 DOSAGE FORM, QD
     Dates: start: 19980404, end: 19980410
  31. CIPROFLOXACIN LACTATE [Suspect]
     Active Substance: CIPROFLOXACIN LACTATE
     Dosage: 2 DOSAGE FORM, QD
     Dates: start: 19980404, end: 19980410
  32. CIPROFLOXACIN LACTATE [Suspect]
     Active Substance: CIPROFLOXACIN LACTATE
     Dosage: 2 DOSAGE FORM, QD
     Route: 048
     Dates: start: 19980404, end: 19980410
  33. CIPROFLOXACIN LACTATE [Suspect]
     Active Substance: CIPROFLOXACIN LACTATE
     Route: 048
     Dates: start: 19980417, end: 19980426
  34. CIPROFLOXACIN LACTATE [Suspect]
     Active Substance: CIPROFLOXACIN LACTATE
     Dates: start: 19980417, end: 19980426
  35. CIPROFLOXACIN LACTATE [Suspect]
     Active Substance: CIPROFLOXACIN LACTATE
     Dates: start: 19980417, end: 19980426
  36. CIPROFLOXACIN LACTATE [Suspect]
     Active Substance: CIPROFLOXACIN LACTATE
     Route: 048
     Dates: start: 19980417, end: 19980426
  37. CIPROFLOXACIN LACTATE [Suspect]
     Active Substance: CIPROFLOXACIN LACTATE
     Indication: Pyrexia
     Dosage: 2 DOSAGE FORM, QD
     Dates: start: 19980417, end: 19980426
  38. CIPROFLOXACIN LACTATE [Suspect]
     Active Substance: CIPROFLOXACIN LACTATE
     Dosage: 2 DOSAGE FORM, QD
     Route: 048
     Dates: start: 19980417, end: 19980426
  39. CIPROFLOXACIN LACTATE [Suspect]
     Active Substance: CIPROFLOXACIN LACTATE
     Dosage: 2 DOSAGE FORM, QD
     Route: 048
     Dates: start: 19980417, end: 19980426
  40. CIPROFLOXACIN LACTATE [Suspect]
     Active Substance: CIPROFLOXACIN LACTATE
     Dosage: 2 DOSAGE FORM, QD
     Dates: start: 19980417, end: 19980426
  41. OXAZEPAM [Suspect]
     Active Substance: OXAZEPAM
     Indication: Sleep disorder
     Dates: start: 19980330, end: 19980416
  42. OXAZEPAM [Suspect]
     Active Substance: OXAZEPAM
     Route: 048
     Dates: start: 19980330, end: 19980416
  43. OXAZEPAM [Suspect]
     Active Substance: OXAZEPAM
     Route: 048
     Dates: start: 19980330, end: 19980416
  44. OXAZEPAM [Suspect]
     Active Substance: OXAZEPAM
     Dates: start: 19980330, end: 19980416
  45. CANRENOATE POTASSIUM [Suspect]
     Active Substance: CANRENOATE POTASSIUM
     Indication: Oedema
     Dates: start: 19980323, end: 19980405
  46. CANRENOATE POTASSIUM [Suspect]
     Active Substance: CANRENOATE POTASSIUM
     Route: 048
     Dates: start: 19980323, end: 19980405
  47. CANRENOATE POTASSIUM [Suspect]
     Active Substance: CANRENOATE POTASSIUM
     Route: 048
     Dates: start: 19980323, end: 19980405
  48. CANRENOATE POTASSIUM [Suspect]
     Active Substance: CANRENOATE POTASSIUM
     Dates: start: 19980323, end: 19980405
  49. NOVALGIN (METAMIZOLE SODIUM) [Suspect]
     Active Substance: METAMIZOLE SODIUM
     Indication: Pain
     Dates: start: 19980403, end: 19980403
  50. NOVALGIN (METAMIZOLE SODIUM) [Suspect]
     Active Substance: METAMIZOLE SODIUM
     Route: 048
     Dates: start: 19980403, end: 19980403
  51. NOVALGIN (METAMIZOLE SODIUM) [Suspect]
     Active Substance: METAMIZOLE SODIUM
     Route: 048
     Dates: start: 19980403, end: 19980403
  52. NOVALGIN (METAMIZOLE SODIUM) [Suspect]
     Active Substance: METAMIZOLE SODIUM
     Dates: start: 19980403, end: 19980403
  53. CISAPRIDE [Suspect]
     Active Substance: CISAPRIDE
     Indication: Gastrointestinal disorder
     Dosage: 15 MILLILITER, QD
     Dates: start: 19980415, end: 19980416
  54. CISAPRIDE [Suspect]
     Active Substance: CISAPRIDE
     Dosage: 15 MILLILITER, QD
     Route: 048
     Dates: start: 19980415, end: 19980416
  55. CISAPRIDE [Suspect]
     Active Substance: CISAPRIDE
     Dosage: 15 MILLILITER, QD
     Route: 048
     Dates: start: 19980415, end: 19980416
  56. CISAPRIDE [Suspect]
     Active Substance: CISAPRIDE
     Dosage: 15 MILLILITER, QD
     Dates: start: 19980415, end: 19980416
  57. LASIX [Suspect]
     Active Substance: FUROSEMIDE
     Indication: Oedema
     Dosage: 40 MILLIGRAM, QD
     Dates: start: 19980406, end: 19980426
  58. LASIX [Suspect]
     Active Substance: FUROSEMIDE
     Dosage: 40 MILLIGRAM, QD
     Route: 048
     Dates: start: 19980406, end: 19980426
  59. LASIX [Suspect]
     Active Substance: FUROSEMIDE
     Dosage: 40 MILLIGRAM, QD
     Route: 048
     Dates: start: 19980406, end: 19980426
  60. LASIX [Suspect]
     Active Substance: FUROSEMIDE
     Dosage: 40 MILLIGRAM, QD
     Dates: start: 19980406, end: 19980426
  61. SODIUM POLYSTYRENE SULFONATE [Suspect]
     Active Substance: SODIUM POLYSTYRENE SULFONATE
     Indication: Hyperkalaemia
     Dosage: 15 GRAM, QD
     Dates: start: 19980406, end: 19980406
  62. SODIUM POLYSTYRENE SULFONATE [Suspect]
     Active Substance: SODIUM POLYSTYRENE SULFONATE
     Dosage: 15 GRAM, QD
     Route: 048
     Dates: start: 19980406, end: 19980406
  63. SODIUM POLYSTYRENE SULFONATE [Suspect]
     Active Substance: SODIUM POLYSTYRENE SULFONATE
     Dosage: 15 GRAM, QD
     Route: 048
     Dates: start: 19980406, end: 19980406
  64. SODIUM POLYSTYRENE SULFONATE [Suspect]
     Active Substance: SODIUM POLYSTYRENE SULFONATE
     Dosage: 15 GRAM, QD
     Dates: start: 19980406, end: 19980406
  65. KONAKION [Suspect]
     Active Substance: PHYTONADIONE
     Indication: Vitamin supplementation
     Dates: start: 19980409, end: 19980426
  66. KONAKION [Suspect]
     Active Substance: PHYTONADIONE
     Route: 048
     Dates: start: 19980409, end: 19980426
  67. KONAKION [Suspect]
     Active Substance: PHYTONADIONE
     Route: 048
     Dates: start: 19980409, end: 19980426
  68. KONAKION [Suspect]
     Active Substance: PHYTONADIONE
     Dates: start: 19980409, end: 19980426
  69. DOXYLAMINE\FOLIC ACID\PYRIDOXINE [Suspect]
     Active Substance: DOXYLAMINE\FOLIC ACID\PYRIDOXINE
     Indication: Nausea
     Dosage: 1 DOSAGE FORM, QD
     Dates: start: 19980414, end: 19980414
  70. DOXYLAMINE\FOLIC ACID\PYRIDOXINE [Suspect]
     Active Substance: DOXYLAMINE\FOLIC ACID\PYRIDOXINE
     Dosage: 1 DOSAGE FORM, QD
     Route: 054
     Dates: start: 19980414, end: 19980414
  71. DOXYLAMINE\FOLIC ACID\PYRIDOXINE [Suspect]
     Active Substance: DOXYLAMINE\FOLIC ACID\PYRIDOXINE
     Dosage: 1 DOSAGE FORM, QD
     Route: 054
     Dates: start: 19980414, end: 19980414
  72. DOXYLAMINE\FOLIC ACID\PYRIDOXINE [Suspect]
     Active Substance: DOXYLAMINE\FOLIC ACID\PYRIDOXINE
     Dosage: 1 DOSAGE FORM, QD
     Dates: start: 19980414, end: 19980414
  73. AMPHO-MORONAL [Suspect]
     Active Substance: AMPHOTERICIN B
     Indication: Oesophageal candidiasis
     Dosage: 6 DOSAGE FORM, QD
     Dates: start: 19980406, end: 19980426
  74. AMPHO-MORONAL [Suspect]
     Active Substance: AMPHOTERICIN B
     Dosage: 6 DOSAGE FORM, QD
     Route: 048
     Dates: start: 19980406, end: 19980426
  75. AMPHO-MORONAL [Suspect]
     Active Substance: AMPHOTERICIN B
     Dosage: 6 DOSAGE FORM, QD
     Route: 048
     Dates: start: 19980406, end: 19980426
  76. AMPHO-MORONAL [Suspect]
     Active Substance: AMPHOTERICIN B
     Dosage: 6 DOSAGE FORM, QD
     Dates: start: 19980406, end: 19980426
  77. ZYRTEC [Concomitant]
     Active Substance: CETIRIZINE HYDROCHLORIDE
     Indication: Rash macular
     Dates: start: 19980419, end: 19980426
  78. ZYRTEC [Concomitant]
     Active Substance: CETIRIZINE HYDROCHLORIDE
     Route: 048
     Dates: start: 19980419, end: 19980426
  79. ZYRTEC [Concomitant]
     Active Substance: CETIRIZINE HYDROCHLORIDE
     Route: 048
     Dates: start: 19980419, end: 19980426
  80. ZYRTEC [Concomitant]
     Active Substance: CETIRIZINE HYDROCHLORIDE
     Dates: start: 19980419, end: 19980426
  81. CARBAMAZEPINE [Concomitant]
     Active Substance: CARBAMAZEPINE
     Indication: Prophylaxis
     Dates: start: 19980312, end: 19980323
  82. CARBAMAZEPINE [Concomitant]
     Active Substance: CARBAMAZEPINE
     Route: 048
     Dates: start: 19980312, end: 19980323
  83. CARBAMAZEPINE [Concomitant]
     Active Substance: CARBAMAZEPINE
     Route: 048
     Dates: start: 19980312, end: 19980323
  84. CARBAMAZEPINE [Concomitant]
     Active Substance: CARBAMAZEPINE
     Dates: start: 19980312, end: 19980323
  85. Linola-fett [Concomitant]
     Indication: Dry skin
     Dates: start: 19980323, end: 19980426
  86. Linola-fett [Concomitant]
     Route: 061
     Dates: start: 19980323, end: 19980426
  87. Linola-fett [Concomitant]
     Route: 061
     Dates: start: 19980323, end: 19980426
  88. Linola-fett [Concomitant]
     Dates: start: 19980323, end: 19980426
  89. LASIX [Concomitant]
     Active Substance: FUROSEMIDE
     Indication: Oedema
     Dates: start: 19980323, end: 19980327
  90. LASIX [Concomitant]
     Active Substance: FUROSEMIDE
     Route: 042
     Dates: start: 19980323, end: 19980327
  91. LASIX [Concomitant]
     Active Substance: FUROSEMIDE
     Route: 042
     Dates: start: 19980323, end: 19980327
  92. LASIX [Concomitant]
     Active Substance: FUROSEMIDE
     Dates: start: 19980323, end: 19980327
  93. Kalinor [Concomitant]
     Indication: Hypokalaemia
     Dates: start: 19980323, end: 19980330
  94. Kalinor [Concomitant]
     Route: 048
     Dates: start: 19980323, end: 19980330
  95. Kalinor [Concomitant]
     Route: 048
     Dates: start: 19980323, end: 19980330
  96. Kalinor [Concomitant]
     Dates: start: 19980323, end: 19980330
  97. Kalinor [Concomitant]
     Indication: Hypokalaemia
     Dates: start: 19980323, end: 19980330
  98. Kalinor [Concomitant]
     Route: 048
     Dates: start: 19980323, end: 19980330
  99. Kalinor [Concomitant]
     Route: 048
     Dates: start: 19980323, end: 19980330
  100. Kalinor [Concomitant]
     Dates: start: 19980323, end: 19980330
  101. FOLIC ACID [Concomitant]
     Active Substance: FOLIC ACID
     Indication: Folate deficiency
     Dates: start: 19980323, end: 19980426
  102. FOLIC ACID [Concomitant]
     Active Substance: FOLIC ACID
     Route: 048
     Dates: start: 19980323, end: 19980426
  103. FOLIC ACID [Concomitant]
     Active Substance: FOLIC ACID
     Route: 048
     Dates: start: 19980323, end: 19980426
  104. FOLIC ACID [Concomitant]
     Active Substance: FOLIC ACID
     Dates: start: 19980323, end: 19980426
  105. DIBUCAINE\POLICRESULEN [Concomitant]
     Active Substance: DIBUCAINE\POLICRESULEN
     Indication: Haemorrhoids
     Dates: start: 19980323, end: 19980426
  106. DIBUCAINE\POLICRESULEN [Concomitant]
     Active Substance: DIBUCAINE\POLICRESULEN
     Route: 054
     Dates: start: 19980323, end: 19980426
  107. DIBUCAINE\POLICRESULEN [Concomitant]
     Active Substance: DIBUCAINE\POLICRESULEN
     Route: 054
     Dates: start: 19980323, end: 19980426
  108. DIBUCAINE\POLICRESULEN [Concomitant]
     Active Substance: DIBUCAINE\POLICRESULEN
     Dates: start: 19980323, end: 19980426
  109. DIFLUCAN [Concomitant]
     Active Substance: FLUCONAZOLE
     Indication: Candida infection
     Dates: start: 19980417, end: 19980426
  110. DIFLUCAN [Concomitant]
     Active Substance: FLUCONAZOLE
     Route: 048
     Dates: start: 19980417, end: 19980426
  111. DIFLUCAN [Concomitant]
     Active Substance: FLUCONAZOLE
     Route: 048
     Dates: start: 19980417, end: 19980426
  112. DIFLUCAN [Concomitant]
     Active Substance: FLUCONAZOLE
     Dates: start: 19980417, end: 19980426
  113. Cytobion [Concomitant]
     Indication: Vitamin supplementation
     Dates: start: 19980323, end: 19980417
  114. Cytobion [Concomitant]
     Route: 058
     Dates: start: 19980323, end: 19980417
  115. Cytobion [Concomitant]
     Route: 058
     Dates: start: 19980323, end: 19980417
  116. Cytobion [Concomitant]
     Dates: start: 19980323, end: 19980417
  117. Clont [Concomitant]
     Indication: Pyrexia
     Dates: start: 19980323, end: 19980330
  118. Clont [Concomitant]
     Route: 048
     Dates: start: 19980323, end: 19980330
  119. Clont [Concomitant]
     Route: 048
     Dates: start: 19980323, end: 19980330
  120. Clont [Concomitant]
     Dates: start: 19980323, end: 19980330
  121. Betabion [Concomitant]
     Indication: Vitamin supplementation
     Dates: start: 19980323, end: 19980426
  122. Betabion [Concomitant]
     Route: 042
     Dates: start: 19980323, end: 19980426
  123. Betabion [Concomitant]
     Route: 042
     Dates: start: 19980323, end: 19980426
  124. Betabion [Concomitant]
     Dates: start: 19980323, end: 19980426
  125. Atosil [Concomitant]
     Indication: Agitation
     Dates: start: 19980417, end: 19980418
  126. Atosil [Concomitant]
     Route: 048
     Dates: start: 19980417, end: 19980418
  127. Atosil [Concomitant]
     Route: 048
     Dates: start: 19980417, end: 19980418
  128. Atosil [Concomitant]
     Dates: start: 19980417, end: 19980418
  129. AQUAPHOR [Concomitant]
     Active Substance: PETROLATUM
     Indication: Oedema
     Dates: start: 19980323, end: 19980407
  130. AQUAPHOR [Concomitant]
     Active Substance: PETROLATUM
     Route: 048
     Dates: start: 19980323, end: 19980407
  131. AQUAPHOR [Concomitant]
     Active Substance: PETROLATUM
     Route: 048
     Dates: start: 19980323, end: 19980407
  132. AQUAPHOR [Concomitant]
     Active Substance: PETROLATUM
     Dates: start: 19980323, end: 19980407
  133. AQUAPHOR [Concomitant]
     Active Substance: PETROLATUM
     Indication: Oedema
     Dates: start: 19980323, end: 19980407
  134. AQUAPHOR [Concomitant]
     Active Substance: PETROLATUM
     Route: 048
     Dates: start: 19980323, end: 19980407
  135. AQUAPHOR [Concomitant]
     Active Substance: PETROLATUM
     Route: 048
     Dates: start: 19980323, end: 19980407
  136. AQUAPHOR [Concomitant]
     Active Substance: PETROLATUM
     Dates: start: 19980323, end: 19980407
  137. OMEPRAZOLE [Concomitant]
     Active Substance: OMEPRAZOLE
     Indication: Gastric ulcer
     Dates: start: 19980323, end: 19980426
  138. OMEPRAZOLE [Concomitant]
     Active Substance: OMEPRAZOLE
     Route: 048
     Dates: start: 19980323, end: 19980426
  139. OMEPRAZOLE [Concomitant]
     Active Substance: OMEPRAZOLE
     Route: 048
     Dates: start: 19980323, end: 19980426
  140. OMEPRAZOLE [Concomitant]
     Active Substance: OMEPRAZOLE
     Dates: start: 19980323, end: 19980426
  141. ACETYLCYSTEINE [Concomitant]
     Active Substance: ACETYLCYSTEINE
     Indication: Unevaluable event
     Dates: start: 19980323, end: 19980426
  142. ACETYLCYSTEINE [Concomitant]
     Active Substance: ACETYLCYSTEINE
     Route: 048
     Dates: start: 19980323, end: 19980426
  143. ACETYLCYSTEINE [Concomitant]
     Active Substance: ACETYLCYSTEINE
     Route: 048
     Dates: start: 19980323, end: 19980426
  144. ACETYLCYSTEINE [Concomitant]
     Active Substance: ACETYLCYSTEINE
     Dates: start: 19980323, end: 19980426
  145. Paractol [Concomitant]
     Indication: Gastrointestinal disorder
     Dates: start: 19980402, end: 19980402
  146. Paractol [Concomitant]
     Route: 048
     Dates: start: 19980402, end: 19980402
  147. Paractol [Concomitant]
     Route: 048
     Dates: start: 19980402, end: 19980402
  148. Paractol [Concomitant]
     Dates: start: 19980402, end: 19980402
  149. POTASSIUM CHLORIDE [Concomitant]
     Active Substance: POTASSIUM CHLORIDE
     Indication: Hypokalaemia
     Dates: start: 19980324, end: 19980411
  150. POTASSIUM CHLORIDE [Concomitant]
     Active Substance: POTASSIUM CHLORIDE
     Route: 048
     Dates: start: 19980324, end: 19980411
  151. POTASSIUM CHLORIDE [Concomitant]
     Active Substance: POTASSIUM CHLORIDE
     Route: 048
     Dates: start: 19980324, end: 19980411
  152. POTASSIUM CHLORIDE [Concomitant]
     Active Substance: POTASSIUM CHLORIDE
     Dates: start: 19980324, end: 19980411

REACTIONS (6)
  - Toxic epidermal necrolysis [Fatal]
  - Vulvovaginal candidiasis [Unknown]
  - Pyrexia [Unknown]
  - Conjunctivitis [Unknown]
  - Mucosa vesicle [Unknown]
  - Mouth ulceration [Unknown]

NARRATIVE: CASE EVENT DATE: 19980416
